FAERS Safety Report 5677064-0 (Version None)
Quarter: 2008Q1

REPORT INFORMATION
  Report Type: 
  Country: None (occurrence: None)
  Receive Date: 20080324
  Receipt Date: 20080314
  Transmission Date: 20080703
  Serious: Yes (Hospitalization)
  Sender: FDA-Public Use
  Company Number: IT-BAYER-200814800GPV

PATIENT
  Age: 72 Year
  Sex: Female

DRUGS (7)
  1. ACETYLSALICYLIC ACID SRT [Suspect]
     Indication: PROPHYLAXIS
     Dosage: TOTAL DAILY DOSE: 100 MG  UNIT DOSE: 100 MG
     Route: 048
     Dates: start: 20070701, end: 20080226
  2. VOLTAREN [Suspect]
     Indication: BACK PAIN
     Route: 030
     Dates: start: 20080213, end: 20080217
  3. MUSCORIL (BETAISTINE) [Concomitant]
     Indication: BACK PAIN
     Route: 030
  4. MODURETIC (HYDROCHLOROTHIAZIDE+ AMILORID) [Concomitant]
     Indication: HYPERTENSION
     Route: 048
  5. NORVASC [Concomitant]
     Indication: HYPERTENSION
     Route: 048
  6. LORAZEPAM [Concomitant]
     Indication: INSOMNIA
     Route: 048
  7. RANIDIL (RANITIDINE) [Concomitant]
     Indication: PROPHYLAXIS
     Route: 048

REACTIONS (3)
  - ANAEMIA [None]
  - DUODENAL ULCER [None]
  - MELAENA [None]
